FAERS Safety Report 25089298 (Version 1)
Quarter: 2025Q1

REPORT INFORMATION
  Report Type: Spontaneous
  Country: AU (occurrence: AU)
  Receive Date: 20250318
  Receipt Date: 20250318
  Transmission Date: 20250408
  Serious: Yes (Life-Threatening, Hospitalization, Other)
  Sender: STRIDES
  Company Number: AU-STRIDES ARCOLAB LIMITED-2025SP003349

PATIENT
  Age: 4 Decade
  Sex: Female

DRUGS (7)
  1. MYCOPHENOLATE MOFETIL [Suspect]
     Active Substance: MYCOPHENOLATE MOFETIL
     Indication: Immunosuppressant drug therapy
     Route: 065
  2. PREDNISOLONE [Suspect]
     Active Substance: PREDNISOLONE
     Indication: Immunosuppressant drug therapy
     Route: 065
  3. WARFARIN [Suspect]
     Active Substance: WARFARIN
     Indication: Anticoagulant therapy
     Route: 065
  4. HEPARIN [Concomitant]
     Active Substance: HEPARIN SODIUM
     Indication: Anticoagulant therapy
     Route: 065
  5. PIPERACILLIN SODIUM\TAZOBACTAM SODIUM [Concomitant]
     Active Substance: PIPERACILLIN SODIUM\TAZOBACTAM SODIUM
     Indication: Evidence based treatment
     Route: 065
  6. VANCOMYCIN [Concomitant]
     Active Substance: VANCOMYCIN
     Indication: Evidence based treatment
     Route: 065
  7. CEFAZOLIN [Concomitant]
     Active Substance: CEFAZOLIN
     Indication: Staphylococcal infection
     Route: 065

REACTIONS (7)
  - Disseminated intravascular coagulation [Unknown]
  - Peripheral ischaemia [Unknown]
  - Aortic thrombosis [Recovering/Resolving]
  - Endocarditis [Unknown]
  - Staphylococcal infection [Unknown]
  - Sepsis [Unknown]
  - Haematoma [Unknown]
